FAERS Safety Report 5411899-4 (Version None)
Quarter: 2007Q3

REPORT INFORMATION
  Report Type: 
  Country: None (occurrence: None)
  Receive Date: 20070810
  Receipt Date: 20070810
  Transmission Date: 20080115
  Serious: Yes (Death)
  Sender: FDA-Public Use
  Company Number: None

PATIENT
  Age: 54 Year
  Sex: Male
  Weight: 105.9 kg

DRUGS (4)
  1. CARBOPLATIN [Suspect]
     Indication: NEOPLASM MALIGNANT
     Dosage: 1050MG IV DAY 1
     Route: 042
     Dates: start: 20070719
  2. TAXOTERE [Suspect]
     Indication: NEOPLASM MALIGNANT
     Dosage: 30MG IV
     Route: 042
     Dates: start: 20070719
  3. IFOSFAMIDE [Suspect]
     Indication: NEOPLASM MALIGNANT
     Dosage: 1000MG/M2
     Dates: start: 20070726
  4. MESNA [Suspect]
     Indication: NEOPLASM MALIGNANT
     Dates: start: 20070802

REACTIONS (3)
  - CYANOSIS [None]
  - EPIGLOTTIC OEDEMA [None]
  - RESPIRATORY DISTRESS [None]
